FAERS Safety Report 4280326-5 (Version None)
Quarter: 2004Q1

REPORT INFORMATION
  Report Type: 
  Country: None (occurrence: None)
  Receive Date: 20040126
  Receipt Date: 20031125
  Transmission Date: 20041129
  Serious: Yes (Hospitalization, Other)
  Sender: FDA-Public Use
  Company Number: USA-2003-0010583

PATIENT
  Age: 49 Year
  Sex: Female
  Weight: 46.3 kg

DRUGS (12)
  1. OXYCONTIN [Suspect]
     Indication: PAIN
     Dosage: SEE TEXT
  2. OXYCODONE HCL [Suspect]
     Indication: PAIN
     Dosage: SEE TEXT
  3. MULTIVITAMIN [Concomitant]
  4. METHADONE HCL [Concomitant]
  5. NEURONTIN [Concomitant]
  6. DARVOCET-N (DEXTROPROPOXYPHENE NAPSILATE) [Concomitant]
  7. PAMELOR [Concomitant]
  8. LORTAB [Concomitant]
  9. BACLOFEN [Concomitant]
  10. AMIBIEN (ZOLPIDEM TARTRATE) [Concomitant]
  11. LASIX [Concomitant]
  12. KLONOPIN [Concomitant]

REACTIONS (22)
  - AMNESIA [None]
  - ANXIETY [None]
  - ARTHRALGIA [None]
  - AUTONOMIC NERVOUS SYSTEM IMBALANCE [None]
  - CARDIAC FAILURE CONGESTIVE [None]
  - CONDITION AGGRAVATED [None]
  - CONNECTIVE TISSUE DISORDER [None]
  - CONSTIPATION [None]
  - DEPENDENCE [None]
  - DRUG ABUSER [None]
  - DRUG INEFFECTIVE [None]
  - DYSPNOEA [None]
  - EMOTIONAL DISTRESS [None]
  - ERYTHEMA [None]
  - HAEMORRHOIDS [None]
  - MITRAL VALVE INCOMPETENCE [None]
  - MITRAL VALVE PROLAPSE [None]
  - OEDEMA PERIPHERAL [None]
  - PAIN [None]
  - PULMONARY HYPERTENSION [None]
  - RAYNAUD'S PHENOMENON [None]
  - TRICUSPID VALVE INCOMPETENCE [None]
